FAERS Safety Report 4486938-8 (Version None)
Quarter: 2004Q3

REPORT INFORMATION
  Report Type: 
  Country: None (occurrence: None)
  Receive Date: 20040921
  Receipt Date: 20031017
  Transmission Date: 20050211
  Serious: Yes (Other)
  Sender: FDA-Public Use
  Company Number: 163-20785-03100502

PATIENT
  Age: 56 Year
  Sex: Female

DRUGS (4)
  1. THALOMID [Suspect]
     Indication: OVARIAN CANCER
     Dosage: 200 MG, QHS, ORAL
     Route: 048
     Dates: start: 20030826, end: 20031007
  2. THALOMID [Suspect]
     Indication: OVARIAN CANCER
     Dosage: 200 MG, QHS, ORAL
     Route: 048
     Dates: start: 20031014
  3. ZIAC (BISELECT) (TABLETS) [Concomitant]
  4. TYLENOL [Concomitant]

REACTIONS (1)
  - BRADYCARDIA [None]
